FAERS Safety Report 25968477 (Version 1)
Quarter: 2025Q4

REPORT INFORMATION
  Report Type: Spontaneous
  Country: CH (occurrence: CH)
  Receive Date: 20251028
  Receipt Date: 20251028
  Transmission Date: 20260117
  Serious: Yes (Other)
  Sender: ROCHE
  Company Number: None

PATIENT
  Age: 55 Year
  Sex: Male

DRUGS (11)
  1. VALGANCICLOVIR [Interacting]
     Active Substance: VALGANCICLOVIR
     Indication: Product used for unknown indication
     Route: 065
     Dates: end: 20250423
  2. CELLCEPT [Interacting]
     Active Substance: MYCOPHENOLATE MOFETIL
     Indication: Product used for unknown indication
     Route: 048
     Dates: end: 20250414
  3. CELLCEPT [Interacting]
     Active Substance: MYCOPHENOLATE MOFETIL
     Route: 048
     Dates: end: 20250423
  4. CELLCEPT [Interacting]
     Active Substance: MYCOPHENOLATE MOFETIL
     Route: 048
     Dates: end: 20250701
  5. CELLCEPT [Interacting]
     Active Substance: MYCOPHENOLATE MOFETIL
     Route: 048
     Dates: end: 20250828
  6. CELLCEPT [Interacting]
     Active Substance: MYCOPHENOLATE MOFETIL
     Route: 048
     Dates: end: 20250915
  7. CELLCEPT [Interacting]
     Active Substance: MYCOPHENOLATE MOFETIL
     Route: 048
  8. TACROLIMUS [Concomitant]
     Active Substance: TACROLIMUS
     Dates: end: 20250422
  9. TACROLIMUS [Concomitant]
     Active Substance: TACROLIMUS
     Dates: start: 20250423
  10. ASPIRIN [Concomitant]
     Active Substance: ASPIRIN
  11. ESOMEPRAZOLE [Concomitant]
     Active Substance: ESOMEPRAZOLE

REACTIONS (3)
  - Leukopenia [Recovered/Resolved]
  - Potentiating drug interaction [Unknown]
  - Agranulocytosis [Recovered/Resolved]

NARRATIVE: CASE EVENT DATE: 20250408
